FAERS Safety Report 26133916 (Version 1)
Quarter: 2025Q4

REPORT INFORMATION
  Report Type: Spontaneous
  Country: US (occurrence: US)
  Receive Date: 20251209
  Receipt Date: 20251209
  Transmission Date: 20260118
  Serious: No
  Sender: LEO PHARM
  Company Number: US-LEO Pharma-384696

PATIENT
  Age: 15 Year
  Sex: Female

DRUGS (1)
  1. ADBRY [Suspect]
     Active Substance: TRALOKINUMAB-LDRM
     Indication: Eczema
     Dosage: TREATMENT ONGOING
     Route: 058
     Dates: start: 20251108

REACTIONS (3)
  - Pruritus [Unknown]
  - Sleep disorder [Unknown]
  - Eyelids pruritus [Recovered/Resolved]
